FAERS Safety Report 6728915-X (Version None)
Quarter: 2010Q2

REPORT INFORMATION
  Report Type: 
  Country: None (occurrence: None)
  Receive Date: 20100517
  Receipt Date: 20100308
  Transmission Date: 20101027
  Serious: No
  Sender: FDA-Public Use
  Company Number: US-ABBOTT-10P-163-0631019-00

PATIENT
  Sex: Female
  Weight: 86.26 kg

DRUGS (12)
  1. SIMCOR [Suspect]
     Indication: BLOOD CHOLESTEROL INCREASED
     Dosage: 500/20 AT BED TIME
     Dates: start: 20100201
  2. SIMCOR [Suspect]
     Dosage: 750/20 AT BED TIME
  3. SIMCOR [Suspect]
     Dosage: 500/20 MG AT BED TIME
  4. ASPIRIN [Concomitant]
     Indication: DRUG USE FOR UNKNOWN INDICATION
  5. PRILOSEC [Concomitant]
     Indication: DRUG USE FOR UNKNOWN INDICATION
  6. PRANDIN [Concomitant]
     Indication: DRUG USE FOR UNKNOWN INDICATION
  7. AVANDI [Concomitant]
     Indication: DRUG USE FOR UNKNOWN INDICATION
  8. JANUMET [Concomitant]
     Indication: DRUG USE FOR UNKNOWN INDICATION
  9. CLINIPRIL [Concomitant]
     Indication: DRUG USE FOR UNKNOWN INDICATION
  10. ATENOLOL [Concomitant]
     Indication: DRUG USE FOR UNKNOWN INDICATION
  11. VITAMIN D [Concomitant]
     Indication: DRUG USE FOR UNKNOWN INDICATION
  12. IRON [Concomitant]
     Indication: DRUG USE FOR UNKNOWN INDICATION

REACTIONS (2)
  - BLOOD GLUCOSE INCREASED [None]
  - FLUSHING [None]
